FAERS Safety Report 4385438-3 (Version None)
Quarter: 2004Q2

REPORT INFORMATION
  Report Type: 
  Country: None (occurrence: None)
  Receive Date: 20040628
  Receipt Date: 20040331
  Transmission Date: 20050107
  Serious: Yes (Hospitalization)
  Sender: FDA-Public Use
  Company Number: PHBS2004JP04445

PATIENT
  Age: 30 Year
  Sex: Male

DRUGS (10)
  1. TEGRETOL [Suspect]
     Indication: BIPOLAR I DISORDER
     Dosage: 400 MG/DAY
     Route: 048
     Dates: start: 20040315, end: 20040321
  2. TEGRETOL [Suspect]
     Dosage: 800 MG/DAY
     Route: 048
     Dates: start: 20040322, end: 20040326
  3. LANDSEN [Suspect]
     Indication: BIPOLAR I DISORDER
     Dosage: 1 DF/DAY
     Route: 048
  4. LITHIUM CARBONATE [Concomitant]
     Indication: BIPOLAR I DISORDER
     Dosage: 6 DF
     Route: 048
  5. LITHIUM CARBONATE [Concomitant]
     Dosage: 6 DF
     Route: 048
  6. DEPAKENE [Concomitant]
     Indication: BIPOLAR I DISORDER
     Dosage: 300 MG/DAY
     Route: 048
     Dates: start: 20030601
  7. SENIRAN [Concomitant]
     Indication: BIPOLAR I DISORDER
     Dosage: 1 DF
     Route: 048
  8. MYSLEE [Concomitant]
     Indication: BIPOLAR I DISORDER
     Dosage: 1 DF
     Route: 048
  9. BROTIZOLAM [Concomitant]
     Indication: BIPOLAR I DISORDER
     Dosage: 1 DF
     Route: 048
  10. ZOTEPINE [Suspect]
     Indication: BIPOLAR I DISORDER
     Dosage: 50 MG/DAY
     Route: 048
     Dates: start: 20040322, end: 20040326

REACTIONS (10)
  - ARTHRALGIA [None]
  - DRUG ERUPTION [None]
  - LIVER FUNCTION TEST ABNORMAL [None]
  - LYMPHADENOPATHY [None]
  - PYREXIA [None]
  - RASH [None]
  - RUBELLA [None]
  - RUBELLA ANTIBODY POSITIVE [None]
  - SEDATION [None]
  - URTICARIA [None]
